FAERS Safety Report 6722815-7 (Version None)
Quarter: 2010Q2

REPORT INFORMATION
  Report Type: 
  Country: None (occurrence: None)
  Receive Date: 20100512
  Receipt Date: 20100512
  Transmission Date: 20101027
  Serious: Yes (Other)
  Sender: FDA-Public Use
  Company Number: None

PATIENT
  Sex: Male
  Weight: 66.6788 kg

DRUGS (6)
  1. RIBAVIRIN [Suspect]
     Indication: HEPATITIS C
     Dosage: 3 CAPS - 600MG- BID PO
     Route: 048
     Dates: start: 20100312, end: 20100506
  2. PEGAYSYS 180MCG/.5ML ROCHE [Suspect]
     Indication: HEPATITIS C
     Dosage: 180 MCG ONCE A WEEK SQ
     Route: 058
     Dates: start: 20100312, end: 20100506
  3. VITAMIN C [Concomitant]
  4. VITAMIN B-12 [Concomitant]
  5. ADVIL [Concomitant]
  6. SLOW FE [Concomitant]

REACTIONS (5)
  - DYSPNOEA [None]
  - FATIGUE [None]
  - HAEMOGLOBIN DECREASED [None]
  - HYPOPHAGIA [None]
  - WEIGHT DECREASED [None]
